FAERS Safety Report 8840713 (Version 2)
Quarter: 2012Q4

REPORT INFORMATION
  Report Type: 
  Country: US (occurrence: US)
  Receive Date: 20121015
  Receipt Date: 20121121
  Transmission Date: 20130627
  Serious: Yes (Other)
  Sender: FDA-Public Use
  Company Number: US-PFIZER INC-2012254560

PATIENT
  Age: 44 Year
  Sex: Female

DRUGS (8)
  1. CHANTIX [Suspect]
     Indication: NICOTINE ADDICTION
     Dosage: BID, starter pack (2RF)
     Route: 048
     Dates: start: 2012, end: 201210
  2. CYMBALTA [Concomitant]
     Indication: DEPRESSION
     Dosage: UNK
  3. LISINOPRIL W/HYDROCHLOROTHIAZIDE [Concomitant]
     Dosage: 20/25 mg
  4. ABILIFY [Concomitant]
     Indication: DEPRESSION
     Dosage: UNK
  5. TRAMADOL [Concomitant]
     Indication: CHRONIC PAIN
     Dosage: UNK
  6. TRAMADOL [Concomitant]
     Indication: RA
  7. FLEXERIL [Concomitant]
     Dosage: UNK
  8. PREVACID [Concomitant]
     Dosage: UNK

REACTIONS (6)
  - Suicidal ideation [Recovered/Resolved]
  - Delusion [Recovered/Resolved]
  - Depression [Recovered/Resolved]
  - Irritability [Unknown]
  - Anxiety [Recovered/Resolved]
  - Hallucination [Recovering/Resolving]
